FAERS Safety Report 12879466 (Version 2)
Quarter: 2017Q4

REPORT INFORMATION
  Report Type: Other
  Country: GB (occurrence: GB)
  Receive Date: 20161025
  Receipt Date: 20171223
  Transmission Date: 20180320
  Serious: Yes (Life-Threatening, Hospitalization, Other)
  Sender: FDA-Public Use
  Company Number: GB-MACLEODS PHARMACEUTICALS US LTD-MAC2016003484

PATIENT

DRUGS (7)
  1. OLANZAPINE. [Suspect]
     Active Substance: OLANZAPINE
     Dosage: 15 MG, QD  (DOSE WAS PREVIOUSLY 10MG DAILY (FOR A FEW YEARS) TITRATED UP TO 15MG)
     Route: 048
     Dates: end: 20160809
  2. ARIPIPRAZOLE TABLET [Suspect]
     Active Substance: ARIPIPRAZOLE
     Indication: BIPOLAR DISORDER
     Dosage: 15 MG, QD (DOSE REDUCED TO 5 MG AND THEN RETITRATED UP TO 15 MG)
     Route: 048
  3. OLANZAPINE. [Suspect]
     Active Substance: OLANZAPINE
     Dosage: 15 MG, QD, TABLET
     Route: 048
     Dates: end: 20160809
  4. ARIPIPRAZOLE TABLET [Suspect]
     Active Substance: ARIPIPRAZOLE
     Dosage: 15 MG, QD
     Route: 048
     Dates: end: 20160809
  5. OLANZAPINE. [Suspect]
     Active Substance: OLANZAPINE
     Indication: BIPOLAR DISORDER
     Dosage: 10 MG, QD (PRE-ADMISSION)
     Route: 048
  6. OLANZAPINE. [Suspect]
     Active Substance: OLANZAPINE
     Dosage: UNK
     Route: 065
  7. ARIPIPRAZOLE TABLET [Suspect]
     Active Substance: ARIPIPRAZOLE
     Dosage: 5 MG, QD
     Route: 048

REACTIONS (9)
  - Uterine leiomyoma [Unknown]
  - Vaginal haemorrhage [Unknown]
  - Hypotension [Unknown]
  - Acute kidney injury [Unknown]
  - Adrenal mass [Unknown]
  - Neuroleptic malignant syndrome [Recovered/Resolved]
  - Keratitis [Unknown]
  - Abnormal behaviour [Unknown]
  - Acute psychosis [Unknown]

NARRATIVE: CASE EVENT DATE: 20160809
